FAERS Safety Report 7285305-1 (Version None)
Quarter: 2011Q1

REPORT INFORMATION
  Report Type: 
  Country: None (occurrence: None)
  Receive Date: 20110121
  Receipt Date: 20080630
  Transmission Date: 20110831
  Serious: No
  Sender: FDA-Public Use
  Company Number: 08-204

PATIENT
  Age: 37 Year
  Sex: Female

DRUGS (1)
  1. FAZACLO ODT [Suspect]
     Indication: BIPOLAR DISORDER
     Dosage: 200 MG DAILY PO
     Route: 048
     Dates: start: 20080313, end: 20080528

REACTIONS (1)
  - SALIVARY HYPERSECRETION [None]
